FAERS Safety Report 5223063-2 (Version None)
Quarter: 2007Q1

REPORT INFORMATION
  Report Type: 
  Country: None (occurrence: None)
  Receive Date: 20070129
  Receipt Date: 20070117
  Transmission Date: 20070707
  Serious: Yes (Other)
  Sender: FDA-Public Use
  Company Number: FR-PFIZER INC-2007005174

PATIENT
  Age: 59 Year
  Sex: Male

DRUGS (3)
  1. LYRICA [Suspect]
     Indication: NEURALGIA
     Dates: start: 20061001, end: 20070101
  2. MIOREL [Concomitant]
  3. ALL OTHER THERAPEUTIC PRODUCTS [Concomitant]

REACTIONS (10)
  - EYE PAIN [None]
  - FLATULENCE [None]
  - GAIT DISTURBANCE [None]
  - HEART RATE INCREASED [None]
  - INCREASED APPETITE [None]
  - LIBIDO DISORDER [None]
  - MOOD SWINGS [None]
  - NERVOUSNESS [None]
  - VERTIGO [None]
  - WEIGHT INCREASED [None]
